FAERS Safety Report 12555322 (Version 3)
Quarter: 2016Q3

REPORT INFORMATION
  Report Type: Spontaneous
  Country: BR (occurrence: BR)
  Receive Date: 20160714
  Receipt Date: 20160825
  Transmission Date: 20161109
  Serious: Yes (Hospitalization)
  Sender: FDA-Public Use
  Company Number: BR-AMGEN-BRASP2010005247

PATIENT
  Age: 46 Year
  Sex: Female
  Weight: 57 kg

DRUGS (8)
  1. ENDOFOLIN [Concomitant]
     Active Substance: FOLIC ACID
     Indication: ADVERSE EVENT
  2. METHOTREXATE. [Concomitant]
     Active Substance: METHOTREXATE
     Indication: PSORIATIC ARTHROPATHY
  3. ENBREL [Suspect]
     Active Substance: ETANERCEPT
     Indication: PSORIATIC ARTHROPATHY
     Dosage: 50 MG, WEEKLY
     Route: 058
     Dates: start: 2010
  4. INFLIXIMAB [Suspect]
     Active Substance: INFLIXIMAB
     Indication: PRODUCT USED FOR UNKNOWN INDICATION
     Dosage: UNK
     Route: 065
  5. ENDOFOLIN [Concomitant]
     Active Substance: FOLIC ACID
     Indication: ADVERSE DRUG REACTION
     Dosage: 5 MG ONCE DAILY ON 2 CONSECUTIVE DAYS TO USE OF ENBREL
     Dates: start: 201010
  6. ENBREL [Suspect]
     Active Substance: ETANERCEPT
     Indication: PSORIASIS
     Dosage: 50 MG, WEEKLY
     Route: 058
     Dates: start: 20100301
  7. REMICADE [Concomitant]
     Active Substance: INFLIXIMAB
     Dosage: UNK
     Dates: start: 2008
  8. METHOTREXATE. [Concomitant]
     Active Substance: METHOTREXATE
     Indication: PSORIASIS
     Dosage: 15 MG, WEEKLY (2.5MG TABLETS, 3 IN THE MORNING AND 3 AT NIGHT)
     Dates: start: 201010

REACTIONS (8)
  - Blood uric acid increased [Unknown]
  - Drug ineffective [Unknown]
  - Intentional product misuse [Unknown]
  - Incorrect dose administered [Unknown]
  - Psoriasis [Recovering/Resolving]
  - Hypersensitivity [Unknown]
  - Product quality issue [Recovered/Resolved]
  - Guttate psoriasis [Recovering/Resolving]

NARRATIVE: CASE EVENT DATE: 20100301
